FAERS Safety Report 10175035 (Version 1)
Quarter: 2014Q2

REPORT INFORMATION
  Report Type: Spontaneous
  Country: CN (occurrence: CN)
  Receive Date: 20140515
  Receipt Date: 20140515
  Transmission Date: 20141212
  Serious: Yes (Hospitalization)
  Sender: FDA-Public Use
  Company Number: PHHY2014CN058293

PATIENT
  Age: 1 Year
  Sex: Male

DRUGS (1)
  1. CEFTRIAXONE [Suspect]

REACTIONS (7)
  - Postrenal failure [Recovered/Resolved]
  - Anuria [Recovered/Resolved]
  - Flank pain [Recovered/Resolved]
  - Crying [Recovered/Resolved]
  - Blood urea increased [Recovered/Resolved]
  - Vomiting [Recovered/Resolved]
  - Hydronephrosis [Recovered/Resolved]
